FAERS Safety Report 7765723-5 (Version None)
Quarter: 2011Q3

REPORT INFORMATION
  Report Type: 
  Country: None (occurrence: None)
  Receive Date: 20110921
  Receipt Date: 20110909
  Transmission Date: 20111222
  Serious: Yes (Hospitalization, Other)
  Sender: FDA-Public Use
  Company Number: PHHY2011DK82741

PATIENT

DRUGS (15)
  1. PREDNISONE [Suspect]
     Route: 065
     Dates: start: 20060901
  2. RITUXIMAB [Suspect]
     Route: 065
     Dates: start: 20060215
  3. RITUXIMAB [Suspect]
     Route: 065
     Dates: start: 20080115
  4. ZEVALIN [Suspect]
     Route: 065
     Dates: start: 20060901, end: 20060901
  5. DOXORUBICIN HCL [Suspect]
     Indication: B-CELL LYMPHOMA RECURRENT
     Route: 065
     Dates: start: 20060901
  6. PREDNISONE [Suspect]
     Indication: B-CELL LYMPHOMA RECURRENT
     Route: 065
     Dates: start: 20080115
  7. PREDNISOLONE [Suspect]
     Indication: B-CELL LYMPHOMA RECURRENT
     Route: 065
     Dates: start: 20080115
  8. RITUXIMAB [Suspect]
     Dosage: UNK
     Route: 065
     Dates: start: 20060901
  9. CYCLOPHOSPHAMIDE [Suspect]
     Indication: B-CELL LYMPHOMA RECURRENT
     Route: 065
     Dates: start: 20050110
  10. CYCLOPHOSPHAMIDE [Suspect]
     Route: 065
     Dates: start: 20060901
  11. VINCRISTINE [Suspect]
     Indication: B-CELL LYMPHOMA RECURRENT
     Route: 065
     Dates: start: 20060901
  12. RITUXIMAB [Suspect]
     Indication: B-CELL LYMPHOMA RECURRENT
     Route: 065
     Dates: start: 20050110
  13. YTRACIS [Suspect]
     Indication: B-CELL LYMPHOMA RECURRENT
     Route: 065
     Dates: start: 20060901, end: 20060901
  14. BENDAMUSTINE [Suspect]
     Indication: B-CELL LYMPHOMA RECURRENT
     Route: 065
     Dates: start: 20080115
  15. ZEVALIN [Suspect]
     Indication: B-CELL LYMPHOMA RECURRENT
     Route: 065
     Dates: start: 20060215

REACTIONS (3)
  - SEPSIS [None]
  - MYELODYSPLASTIC SYNDROME [None]
  - B-CELL LYMPHOMA [None]
